FAERS Safety Report 14721287 (Version 1)
Quarter: 2018Q2

REPORT INFORMATION
  Report Type: Spontaneous
  Country: US (occurrence: US)
  Receive Date: 20180405
  Receipt Date: 20180405
  Transmission Date: 20180711
  Serious: Yes (Hospitalization, Other)
  Sender: FDA-Public Use
  Company Number: US-SA-2018SA099818

PATIENT
  Sex: Female

DRUGS (2)
  1. SOLOSTAR [Suspect]
     Active Substance: DEVICE
  2. LANTUS SOLOSTAR [Suspect]
     Active Substance: INSULIN GLARGINE
     Route: 051

REACTIONS (4)
  - Hypoacusis [Unknown]
  - Blood glucose abnormal [Unknown]
  - Cerebrovascular accident [Unknown]
  - Dysphonia [Unknown]

NARRATIVE: CASE EVENT DATE: 201512
